FAERS Safety Report 5618694-1 (Version None)
Quarter: 2008Q1

REPORT INFORMATION
  Report Type: 
  Country: None (occurrence: None)
  Receive Date: 20080205
  Receipt Date: 20080129
  Transmission Date: 20080703
  Serious: Yes (Disabling)
  Sender: FDA-Public Use
  Company Number: E2020-02197-SPO-US

PATIENT
  Age: 85 Year
  Sex: Male

DRUGS (6)
  1. ARICEPT [Suspect]
     Indication: DRUG USE FOR UNKNOWN INDICATION
     Dosage: ORAL
     Route: 048
  2. NIASPAN [Concomitant]
  3. COUMADIN [Concomitant]
  4. TRILEPTAL [Concomitant]
  5. ASPIRIN [Concomitant]
  6. LISINOPRIL [Concomitant]

REACTIONS (3)
  - BLADDER PAIN [None]
  - NEUROGENIC BLADDER [None]
  - NO THERAPEUTIC RESPONSE [None]
